FAERS Safety Report 9580084 (Version 1)
Quarter: 2013Q3

REPORT INFORMATION
  Report Type: Spontaneous
  Country: CA (occurrence: None)
  Receive Date: 20130930
  Receipt Date: 20130930
  Transmission Date: 20140515
  Serious: Yes (Hospitalization, Other)
  Sender: FDA-Public Use
  Company Number: VAL_02749_2013

PATIENT
  Age: 67 Year
  Sex: Female

DRUGS (14)
  1. ROCALTROL [Suspect]
     Indication: PRODUCT USED FOR UNKNOWN INDICATION
  2. CALCITROL [Suspect]
     Indication: PRODUCT USED FOR UNKNOWN INDICATION
  3. CALCIUM CARBONATE [Suspect]
     Indication: PRODUCT USED FOR UNKNOWN INDICATION
     Route: 048
  4. MILK OF MAGNESIA [Suspect]
     Indication: PRODUCT USED FOR UNKNOWN INDICATION
  5. ONE ALPHA [Suspect]
     Indication: PRODUCT USED FOR UNKNOWN INDICATION
  6. DILTIAZEM [Concomitant]
  7. DOMPERIDONE [Concomitant]
  8. EPREX [Concomitant]
  9. INSULIN [Concomitant]
  10. LIPITOR [Concomitant]
  11. PLAVIX [Concomitant]
  12. PROTAMINE SULFATE [Concomitant]
  13. THYROXINE [Concomitant]
  14. LEVOTHYROXINE [Concomitant]

REACTIONS (15)
  - Acute myocardial infarction [None]
  - Cerebral calcification [None]
  - Cholelithiasis [None]
  - Confusional state [None]
  - Convulsion [None]
  - Disorientation [None]
  - Hypercalcaemia [None]
  - Hypocalcaemia [None]
  - Hypoglycaemia [None]
  - Metabolic alkalosis [None]
  - Milk-alkali syndrome [None]
  - Mobility decreased [None]
  - Renal failure [None]
  - Hyperkalaemia [None]
  - Alkalosis hypokalaemic [None]
